FAERS Safety Report 19805635 (Version 2)
Quarter: 2022Q1

REPORT INFORMATION
  Report Type: Spontaneous
  Country: US (occurrence: US)
  Receive Date: 20210908
  Receipt Date: 20220221
  Transmission Date: 20220423
  Serious: Yes (Hospitalization)
  Sender: FDA-Public Use
  Company Number: ENDG20-01543

PATIENT
  Sex: Female

DRUGS (16)
  1. BOSENTAN [Suspect]
     Active Substance: BOSENTAN
     Indication: Pulmonary arterial hypertension
     Dosage: 1 DF, BID
     Route: 048
  2. ADEMPAS [Concomitant]
     Active Substance: RIOCIGUAT
     Indication: Product used for unknown indication
     Dosage: UNK UNKNOWN, UNKNOWN
     Route: 065
  3. BOSENTAN [Concomitant]
     Active Substance: BOSENTAN
     Indication: Product used for unknown indication
     Dosage: UNK UNKNOWN, UNKNOWN
     Route: 065
  4. CLONAZEPAM [Concomitant]
     Active Substance: CLONAZEPAM
     Indication: Product used for unknown indication
     Dosage: UNK UNKNOWN, UNKNOWN
     Route: 065
  5. FOLIC ACID [Concomitant]
     Active Substance: FOLIC ACID
     Indication: Product used for unknown indication
     Dosage: UNK UNKNOWN, UNKNOWN
     Route: 065
  6. FUROSEMIDE [Concomitant]
     Active Substance: FUROSEMIDE
     Indication: Product used for unknown indication
     Dosage: UNK UNKNOWN, UNKNOWN
     Route: 065
  7. IRON                               /00023503/ [Concomitant]
     Indication: Supplementation therapy
     Dosage: UNK UNKNOWN, UNKNOWN
     Route: 065
  8. MUCINEX [Concomitant]
     Active Substance: GUAIFENESIN
     Indication: Product used for unknown indication
     Dosage: UNK UNKNOWN, UNKNOWN
     Route: 065
  9. MYRBETRIQ [Concomitant]
     Active Substance: MIRABEGRON
     Indication: Product used for unknown indication
     Dosage: UNK UNKNOWN, UNKNOWN
     Route: 065
  10. PERCOCET                           /00867901/ [Concomitant]
     Indication: Product used for unknown indication
     Dosage: UNK UNKNOWN, UNKNOWN
     Route: 065
  11. PHENTERMINE [Concomitant]
     Active Substance: PHENTERMINE
     Indication: Product used for unknown indication
     Dosage: UNK UNKNOWN, UNKNOWN
     Route: 065
  12. POTASSIUM CHLORIDE MICRO TAB [Concomitant]
     Indication: Product used for unknown indication
     Dosage: UNK UNKNOWN, UNKNOWN
     Route: 065
  13. PREDNISONE [Concomitant]
     Active Substance: PREDNISONE
     Indication: Product used for unknown indication
     Dosage: UNK UNKNOWN, UNKNOWN
     Route: 065
  14. SILDENAFIL CITRATE [Concomitant]
     Active Substance: SILDENAFIL CITRATE
     Indication: Product used for unknown indication
     Dosage: UNK UNKNOWN, UNKNOWN
     Route: 065
  15. VITAMIN B12                        /00056201/ [Concomitant]
     Indication: Product used for unknown indication
     Dosage: UNK UNKNOWN, UNKNOWN
     Route: 065
  16. WARFARIN [Concomitant]
     Active Substance: WARFARIN
     Indication: Product used for unknown indication
     Dosage: UNK UNKNOWN, UNKNOWN
     Route: 065

REACTIONS (1)
  - Cerebrovascular accident [Recovered/Resolved with Sequelae]

NARRATIVE: CASE EVENT DATE: 20210101
